FAERS Safety Report 24918180 (Version 2)
Quarter: 2025Q3

REPORT INFORMATION
  Report Type: Spontaneous
  Country: US (occurrence: US)
  Receive Date: 20250203
  Receipt Date: 20250804
  Transmission Date: 20251020
  Serious: Yes (Hospitalization)
  Sender: DAIICHI
  Company Number: US-DSJP-DS-2025-121381-US

PATIENT
  Sex: Male

DRUGS (2)
  1. VANFLYTA [Suspect]
     Active Substance: QUIZARTINIB DIHYDROCHLORIDE
     Indication: Acute myeloid leukaemia
     Dosage: 35.4 MG, QD (DAYS 6-19 OF CHEMO DAYS OUT OF 28 DAY CYCLE)
     Route: 048
     Dates: start: 20250105
  2. VANFLYTA [Suspect]
     Active Substance: QUIZARTINIB DIHYDROCHLORIDE
     Dosage: 26.5 MG, QD
     Route: 048
     Dates: start: 20250105

REACTIONS (3)
  - Infection [Not Recovered/Not Resolved]
  - Blood test abnormal [Not Recovered/Not Resolved]
  - Product dose omission issue [Not Recovered/Not Resolved]
